FAERS Safety Report 16433898 (Version 2)
Quarter: 2019Q3

REPORT INFORMATION
  Report Type: Report from Study
  Country: IT (occurrence: IT)
  Receive Date: 20190614
  Receipt Date: 20190731
  Transmission Date: 20191004
  Serious: Yes (Hospitalization, Congenital Anomaly)
  Sender: FDA-Public Use
  Company Number: IT-TEVA-2019-IT-1062657

PATIENT
  Age: 9 Year
  Sex: Male
  Weight: 37 kg

DRUGS (18)
  1. DILATREND [Concomitant]
     Active Substance: CARVEDILOL
     Route: 048
  2. VINCRISTINE [Suspect]
     Active Substance: VINCRISTINE
     Indication: ACUTE LYMPHOCYTIC LEUKAEMIA
     Route: 042
     Dates: start: 20181129, end: 20181204
  3. METHOTREXATE. [Suspect]
     Active Substance: METHOTREXATE
     Indication: ACUTE LYMPHOCYTIC LEUKAEMIA
     Route: 037
     Dates: start: 20181115, end: 20181129
  4. METHOTREXATE. [Suspect]
     Active Substance: METHOTREXATE
     Route: 042
     Dates: start: 20181115, end: 20181221
  5. ONCASPAR [Suspect]
     Active Substance: PEGASPARGASE
     Indication: ACUTE LYMPHOCYTIC LEUKAEMIA
     Route: 042
     Dates: start: 20181204, end: 20181226
  6. ENDOXAN BAXTER [Suspect]
     Active Substance: CYCLOPHOSPHAMIDE
     Indication: ACUTE LYMPHOCYTIC LEUKAEMIA
     Route: 042
     Dates: start: 20181130, end: 20181130
  7. MYCOSTATIN [Concomitant]
     Active Substance: NYSTATIN
     Route: 048
  8. PERFALGAN [Concomitant]
     Active Substance: ACETAMINOPHEN
     Route: 042
     Dates: start: 20181207, end: 20181207
  9. UROMITEXAN [Suspect]
     Active Substance: MESNA
     Route: 042
     Dates: start: 20181203, end: 20181203
  10. BACTRIM [Concomitant]
     Active Substance: SULFAMETHOXAZOLE\TRIMETHOPRIM
     Route: 048
  11. ANTRA [Concomitant]
     Active Substance: OMEPRAZOLE
     Route: 042
  12. URBASON [Concomitant]
     Active Substance: METHYLPREDNISOLONE
     Route: 037
     Dates: start: 20181115, end: 20181129
  13. IG VENA [Concomitant]
     Active Substance: HUMAN IMMUNOGLOBULIN G
     Indication: BLOOD IMMUNOGLOBULIN G DECREASED
     Route: 042
     Dates: start: 20181207, end: 20181207
  14. UROMITEXAN [Suspect]
     Active Substance: MESNA
     Route: 042
     Dates: start: 20181130, end: 20181130
  15. ENDOXAN BAXTER [Suspect]
     Active Substance: CYCLOPHOSPHAMIDE
     Route: 042
     Dates: start: 20181201, end: 20181202
  16. UROMITEXAN [Suspect]
     Active Substance: MESNA
     Indication: ACUTE LYMPHOCYTIC LEUKAEMIA
     Route: 042
     Dates: start: 20181201, end: 20181202
  17. DEBRIDAT [Concomitant]
     Active Substance: TRIMEBUTINE MALEATE
     Route: 042
     Dates: start: 20181207
  18. ENTEROGERMINA [Concomitant]
     Active Substance: BACILLUS SUBTILIS
     Route: 048
     Dates: start: 20181207

REACTIONS (1)
  - Aplasia [Recovered/Resolved]

NARRATIVE: CASE EVENT DATE: 20181210
